FAERS Safety Report 10077115 (Version 1)
Quarter: 2014Q2

REPORT INFORMATION
  Report Type: Spontaneous
  Country: PL (occurrence: None)
  Receive Date: 20140410
  Receipt Date: 20140410
  Transmission Date: 20141212
  Serious: Yes (Other)
  Sender: FDA-Public Use
  Company Number: KAD201414-000388

PATIENT
  Age: 61 Year
  Sex: Male

DRUGS (8)
  1. RIBAVIRIN (RIBAVIRIN) [Suspect]
     Indication: HEPATITIS C
  2. PEGYLATED INTERFERON ALFA-2A (PEGYLATED INTERFERON ALFA-2A) [Suspect]
     Indication: HEPATITIS C
  3. PREDNISOLONE (PREDNISOLONE) [Concomitant]
  4. OMEPRAZOLE (OMEPRAZOLE) [Concomitant]
  5. CEFTRIAXONE (CEFTRIAXONE) [Concomitant]
  6. L-THYROXINE (L-THYROXINE) [Concomitant]
  7. MYCOPHENOLATE MOFETIL (MYCOPHENOLATE MOFETIL) [Concomitant]
  8. TACROLIMUS (TACROLIMUS) [Concomitant]

REACTIONS (4)
  - Anaemia [None]
  - Thrombocytopenia [None]
  - Leukopenia [None]
  - Antithrombin III decreased [None]
